FAERS Safety Report 6199786-8 (Version None)
Quarter: 2009Q2

REPORT INFORMATION
  Report Type: 
  Country: None (occurrence: None)
  Receive Date: 20090522
  Receipt Date: 20090511
  Transmission Date: 20091009
  Serious: Yes (Other)
  Sender: FDA-Public Use
  Company Number: US-ELI_LILLY_AND_COMPANY-US200905002098

PATIENT
  Sex: Female

DRUGS (7)
  1. CYMBALTA [Suspect]
     Indication: SLEEP DISORDER
     Dosage: 20 MG, UNK
     Dates: start: 20090505, end: 20090506
  2. OXYCODONE [Concomitant]
     Dosage: 10 MG, AS NEEDED
  3. ROPINIROLE [Concomitant]
  4. LORAZEPAM [Concomitant]
  5. BENADRYL ALLERGY /00000402/ [Concomitant]
  6. LEVSIN [Concomitant]
  7. NASAL SPRAY [Concomitant]

REACTIONS (6)
  - DYSPNOEA [None]
  - HYPERSENSITIVITY [None]
  - OEDEMA MOUTH [None]
  - SPEECH DISORDER [None]
  - SWOLLEN TONGUE [None]
  - TREMOR [None]
